FAERS Safety Report 6705988-1 (Version None)
Quarter: 2010Q2

REPORT INFORMATION
  Report Type: 
  Country: None (occurrence: None)
  Receive Date: 20100430
  Receipt Date: 20100430
  Transmission Date: 20101027
  Serious: No
  Sender: FDA-Public Use
  Company Number: None

PATIENT
  Age: 62 Year
  Sex: Male
  Weight: 91.3 kg

DRUGS (2)
  1. GEMCITABINE HCL [Suspect]
     Indication: PANCREATIC CARCINOMA
     Dosage: 1000MG/M2IV D/1, 8, 15 Q21
     Route: 042
     Dates: start: 20100414
  2. ERLOTINIB HYDROCHLORIDE [Suspect]
     Indication: PANCREATIC CARCINOMA
     Dosage: 150MG/PO/2-5, 9-12, 16-26
     Route: 048
     Dates: start: 20100415, end: 20100419

REACTIONS (2)
  - BILE DUCT OBSTRUCTION [None]
  - HEPATIC NEOPLASM MALIGNANT [None]
